FAERS Safety Report 20728347 (Version 1)
Quarter: 2022Q2

REPORT INFORMATION
  Report Type: Spontaneous
  Country: US (occurrence: None)
  Receive Date: 20220420
  Receipt Date: 20220420
  Transmission Date: 20220721
  Serious: Yes (Other)
  Sender: FDA-Public Use
  Company Number: US-Unichem Pharmaceuticals (USA) Inc-UCM202109-000911

PATIENT
  Age: 80 Year
  Sex: Female
  Weight: 63.5 kg

DRUGS (9)
  1. TOPIRAMATE [Suspect]
     Active Substance: TOPIRAMATE
     Indication: Seizure
     Dosage: ONE HALF
     Dates: start: 202107
  2. TOPIRAMATE [Suspect]
     Active Substance: TOPIRAMATE
     Dosage: INCREASE TO ONE IN MORNING AND ONE IN EVENING
  3. TOPIRAMATE [Suspect]
     Active Substance: TOPIRAMATE
     Dosage: TWO TABLETS IN MORNING AND TWO IN EVENING
  4. TOPIRAMATE [Suspect]
     Active Substance: TOPIRAMATE
     Dosage: TWO TABLES IN MORNING AND ONE AT NIGHT
  5. ATENOLOL [Concomitant]
     Active Substance: ATENOLOL
     Indication: Blood pressure abnormal
     Dosage: UNKNOWN
  6. DULOXETINE [Concomitant]
     Active Substance: DULOXETINE
     Indication: Product used for unknown indication
     Dosage: UNKNOWN
  7. FLUTICASONE [Concomitant]
     Active Substance: FLUTICASONE
     Indication: Product used for unknown indication
     Dosage: UNKNOWN
  8. VENTOLIN [Concomitant]
     Active Substance: ALBUTEROL SULFATE
     Indication: Product used for unknown indication
     Dosage: UNKNOWN
  9. GABAPENTIN [Concomitant]
     Active Substance: GABAPENTIN
     Indication: Product used for unknown indication
     Dosage: UNKNOWN

REACTIONS (3)
  - Seizure [Unknown]
  - Confusional state [Unknown]
  - Intentional product misuse [Unknown]
